FAERS Safety Report 7432632-0 (Version None)
Quarter: 2011Q2

REPORT INFORMATION
  Report Type: 
  Country: None (occurrence: None)
  Receive Date: 20110422
  Receipt Date: 20110415
  Transmission Date: 20111010
  Serious: Yes (Other)
  Sender: FDA-Public Use
  Company Number: TR-ABBOTT-11P-161-0719411-00

PATIENT
  Age: 31 Year
  Sex: Male
  Weight: 98 kg

DRUGS (1)
  1. HUMIRA [Suspect]
     Indication: ANKYLOSING SPONDYLITIS
     Route: 058
     Dates: start: 20090101, end: 20110201

REACTIONS (2)
  - DEAFNESS [None]
  - TINNITUS [None]
